FAERS Safety Report 4305249-4 (Version None)
Quarter: 2004Q1

REPORT INFORMATION
  Report Type: 
  Country: None (occurrence: None)
  Receive Date: 20040226
  Receipt Date: 20031204
  Transmission Date: 20041129
  Serious: No
  Sender: FDA-Public Use
  Company Number: US-BRISTOL-MYERS SQUIBB COMPANY-12450151

PATIENT
  Age: 23 Year
  Sex: Male

DRUGS (4)
  1. DEFINITY [Suspect]
     Dosage: FOLLOWED BY .1 ML
     Route: 042
     Dates: start: 20031202, end: 20031202
  2. COUMADIN [Concomitant]
  3. SINGULAIR [Concomitant]
  4. ALBUTEROL [Concomitant]

REACTIONS (1)
  - BACK PAIN [None]
